FAERS Safety Report 5993510-7 (Version None)
Quarter: 2008Q4

REPORT INFORMATION
  Report Type: 
  Country: None (occurrence: None)
  Receive Date: 20081212
  Receipt Date: 20081209
  Transmission Date: 20090506
  Serious: Yes (Death)
  Sender: FDA-Public Use
  Company Number: US-BAYER-200831949NA

PATIENT
  Age: 68 Year
  Sex: Male

DRUGS (1)
  1. NEXAVAR [Suspect]
     Indication: DRUG USE FOR UNKNOWN INDICATION
     Dates: start: 20080801

REACTIONS (1)
  - DISEASE PROGRESSION [None]
